FAERS Safety Report 5975958-X (Version None)
Quarter: 2008Q4

REPORT INFORMATION
  Report Type: 
  Country: None (occurrence: None)
  Receive Date: 20081202
  Receipt Date: 20081125
  Transmission Date: 20090506
  Serious: Yes (Other)
  Sender: FDA-Public Use
  Company Number: GB-ELI_LILLY_AND_COMPANY-GB200811006032

PATIENT
  Age: 8 Month

DRUGS (4)
  1. FLUOXETINE [Suspect]
     Route: 064
  2. FLUOXETINE [Suspect]
     Route: 063
  3. SERTRALINE [Concomitant]
     Dosage: 100 MG, UNK
     Route: 063
     Dates: start: 20080501, end: 20080101
  4. SERTRALINE [Concomitant]
     Dosage: 50 MG, UNK
     Route: 063
     Dates: start: 20080101

REACTIONS (3)
  - DRUG EXPOSURE DURING PREGNANCY [None]
  - DRUG EXPOSURE VIA BREAST MILK [None]
  - TREMOR [None]
